FAERS Safety Report 19666622 (Version 1)
Quarter: 2021Q3

REPORT INFORMATION
  Report Type: Spontaneous
  Country: CA (occurrence: CA)
  Receive Date: 20210806
  Receipt Date: 20210806
  Transmission Date: 20211014
  Serious: Yes (Other)
  Sender: FDA-Public Use
  Company Number: CA-TEVA-2021-CA-1939012

PATIENT
  Age: 51 Year
  Sex: Female

DRUGS (2)
  1. ESOMEPRAZOLE. [Suspect]
     Active Substance: ESOMEPRAZOLE MAGNESIUM
     Indication: GASTROOESOPHAGEAL REFLUX DISEASE
     Dosage: 40 MILLIGRAM DAILY;
     Route: 048
  2. ESOMEPRAZOLE. [Suspect]
     Active Substance: ESOMEPRAZOLE MAGNESIUM
     Indication: IMPAIRED GASTRIC EMPTYING
     Dosage: 40 MILLIGRAM DAILY;
     Route: 048

REACTIONS (7)
  - Thoracic vertebral fracture [Unknown]
  - Malabsorption [Unknown]
  - Vitamin B12 deficiency [Unknown]
  - Ankle fracture [Unknown]
  - Osteopenia [Unknown]
  - Pneumonia [Unknown]
  - Fall [Unknown]
